FAERS Safety Report 7399235-8 (Version None)
Quarter: 2011Q2

REPORT INFORMATION
  Report Type: 
  Country: None (occurrence: None)
  Receive Date: 20110407
  Receipt Date: 20110405
  Transmission Date: 20111010
  Serious: No
  Sender: FDA-Public Use
  Company Number: US-PFIZER INC-2011075527

PATIENT
  Sex: Female
  Weight: 58.957 kg

DRUGS (2)
  1. GEODON [Suspect]
     Indication: BIPOLAR DISORDER
     Dosage: 40 MG, 2X/DAY
     Route: 048
     Dates: start: 20110125
  2. KLONOPIN [Concomitant]
     Dosage: UNK

REACTIONS (2)
  - SOMNOLENCE [None]
  - FATIGUE [None]
